FAERS Safety Report 11308708 (Version 3)
Quarter: 2015Q3

REPORT INFORMATION
  Report Type: Spontaneous
  Country: US (occurrence: US)
  Receive Date: 20150724
  Receipt Date: 20150810
  Transmission Date: 20151125
  Serious: Yes (Other)
  Sender: FDA-Public Use
  Company Number: CHPA2015US008733

PATIENT
  Age: 75 Year
  Sex: Female

DRUGS (4)
  1. EXCEDRIN EXTRA STRENGTH [Suspect]
     Active Substance: ACETAMINOPHEN\ASPIRIN\CAFFEINE
     Indication: PRODUCT USED FOR UNKNOWN INDICATION
     Dosage: 1 DF, QD
     Route: 065
  2. EXCEDRIN EXTRA STRENGTH [Suspect]
     Active Substance: ACETAMINOPHEN\ASPIRIN\CAFFEINE
     Indication: MIGRAINE
     Dosage: 1 DF, QD
     Route: 065
     Dates: start: 1970
  3. EXCEDRIN EXTRA STRENGTH [Suspect]
     Active Substance: ACETAMINOPHEN\ASPIRIN\CAFFEINE
     Dosage: 4 DF, QD
     Route: 065
     Dates: end: 2015
  4. EXCEDRIN EXTRA STRENGTH [Suspect]
     Active Substance: ACETAMINOPHEN\ASPIRIN\CAFFEINE
     Dosage: 2 DF, QD
     Route: 065

REACTIONS (8)
  - Myocardial infarction [Unknown]
  - Abdominal pain upper [Recovered/Resolved]
  - Loss of consciousness [Recovered/Resolved]
  - Therapeutic response unexpected [Unknown]
  - Product use issue [Unknown]
  - Headache [Not Recovered/Not Resolved]
  - Drug ineffective for unapproved indication [Unknown]
  - Underdose [Unknown]

NARRATIVE: CASE EVENT DATE: 2008
